FAERS Safety Report 8536822-5 (Version None)
Quarter: 2012Q3

REPORT INFORMATION
  Report Type: 
  Country: None (occurrence: None)
  Receive Date: 20120725
  Receipt Date: 20120713
  Transmission Date: 20120928
  Serious: Yes (Hospitalization)
  Sender: FDA-Public Use
  Company Number: JP-ELI_LILLY_AND_COMPANY-JP201202004575

PATIENT
  Sex: Female

DRUGS (6)
  1. AMLODIPINE [Concomitant]
     Dosage: 2.5 MG, QD
     Route: 048
  2. GEMZAR [Suspect]
     Indication: PANCREATIC CARCINOMA STAGE IV
     Dosage: 800 MG/M2, WEEKLY (1/W)
     Route: 042
     Dates: start: 20120608, end: 20120615
  3. GEMZAR [Suspect]
     Dosage: 1000 MG/M2, OTHER
     Route: 042
     Dates: start: 20110727, end: 20111228
  4. FOLIAMIN [Concomitant]
     Dosage: UNK
     Route: 048
  5. OMEPRAZOLE [Concomitant]
     Dosage: 10 MG, QD
     Route: 048
  6. VITAMEDIN [Concomitant]
     Dosage: UNK
     Route: 048

REACTIONS (2)
  - PULMONARY ALVEOLAR HAEMORRHAGE [None]
  - INTERSTITIAL LUNG DISEASE [None]
